FAERS Safety Report 4359383-3 (Version None)
Quarter: 2004Q2

REPORT INFORMATION
  Report Type: 
  Country: None (occurrence: None)
  Receive Date: 20040512
  Receipt Date: 20040505
  Transmission Date: 20050107
  Serious: Yes (Death, Hospitalization)
  Sender: FDA-Public Use
  Company Number: HQWYE711205MAY04

PATIENT
  Age: 64 Year
  Sex: Male
  Weight: 89.89 kg

DRUGS (11)
  1. MYLOTARG [Suspect]
     Indication: ACUTE MYELOID LEUKAEMIA
     Dosage: 9 MG/M^2 1X PER 1 DAY, INTRAVENOUS
     Route: 042
     Dates: start: 20040406, end: 20040406
  2. ACYCLOVIR [Concomitant]
  3. COREG [Concomitant]
  4. CELECOXIB (CELECOXIB) [Concomitant]
  5. DIFLUCAN [Concomitant]
  6. MAGNESIUM OXIDE (MAGNESIUM OXIDE) [Concomitant]
  7. MULTIV (VITAMINS NOS) [Concomitant]
  8. POTASSIUM CHLORIDE [Concomitant]
  9. PROTONIX [Concomitant]
  10. ZOCOR [Concomitant]
  11. AMBIEN [Concomitant]

REACTIONS (16)
  - ABDOMINAL DISTENSION [None]
  - ALANINE AMINOTRANSFERASE INCREASED [None]
  - ASCITES [None]
  - ASPARTATE AMINOTRANSFERASE INCREASED [None]
  - BLOOD BILIRUBIN INCREASED [None]
  - CARDIOMEGALY [None]
  - FEBRILE NEUTROPENIA [None]
  - HEPATOSPLENOMEGALY [None]
  - LIVER FUNCTION TEST ABNORMAL [None]
  - OEDEMA PERIPHERAL [None]
  - PLEURAL EFFUSION [None]
  - RENAL FAILURE ACUTE [None]
  - RESPIRATORY DISORDER [None]
  - STREPTOCOCCAL BACTERAEMIA [None]
  - VENOOCCLUSIVE LIVER DISEASE [None]
  - WEIGHT INCREASED [None]
